FAERS Safety Report 4415679-8 (Version None)
Quarter: 2004Q2

REPORT INFORMATION
  Report Type: 
  Country: None (occurrence: None)
  Receive Date: 20040618
  Receipt Date: 20040227
  Transmission Date: 20050107
  Serious: Yes (Other)
  Sender: FDA-Public Use
  Company Number: US-JNJFOC-20030906199

PATIENT
  Age: 20 Year
  Sex: Female
  Weight: 70.3075 kg

DRUGS (2)
  1. ORTHO EVRA [Suspect]
     Indication: CONTRACEPTION
     Dosage: 1 DOSE(S), 3 IN 4 WEEK, TRANSDERMAL
     Route: 062
     Dates: start: 20021101, end: 20030922
  2. VITAMINS (VITAMINS) [Concomitant]

REACTIONS (1)
  - SYNCOPE [None]
